FAERS Safety Report 6327145-3 (Version None)
Quarter: 2009Q3

REPORT INFORMATION
  Report Type: 
  Country: None (occurrence: None)
  Receive Date: 20090825
  Receipt Date: 20090818
  Transmission Date: 20100115
  Serious: Yes (Death, Hospitalization)
  Sender: FDA-Public Use
  Company Number: A0803853A

PATIENT
  Sex: Female

DRUGS (1)
  1. SERETIDE [Suspect]
     Dosage: 2PUFF TWICE PER DAY
     Route: 055
     Dates: start: 20080608, end: 20090818

REACTIONS (4)
  - ASTHMA [None]
  - BRONCHOSPASM [None]
  - PNEUMONIA [None]
  - RESPIRATORY FAILURE [None]
